FAERS Safety Report 9813771 (Version 1)
Quarter: 2014Q1

REPORT INFORMATION
  Report Type: Spontaneous
  Country: DE (occurrence: DE)
  Receive Date: 20140113
  Receipt Date: 20140113
  Transmission Date: 20141002
  Serious: Yes (Congenital Anomaly)
  Sender: FDA-Public Use
  Company Number: DE-TEVA-454992GER

PATIENT
  Age: 1 Day
  Sex: Female
  Weight: 2.02 kg

DRUGS (2)
  1. FLUOXETIN [Suspect]
     Route: 064
  2. CEFUROXIM [Concomitant]
     Route: 064

REACTIONS (4)
  - Ventricular septal defect [Not Recovered/Not Resolved]
  - Atrial septal defect [Not Recovered/Not Resolved]
  - Intraventricular haemorrhage neonatal [Unknown]
  - Premature baby [Recovered/Resolved]
